FAERS Safety Report 7222805-4 (Version None)
Quarter: 2011Q1

REPORT INFORMATION
  Report Type: 
  Country: None (occurrence: None)
  Receive Date: 20110106
  Receipt Date: 20110106
  Transmission Date: 20110831
  Serious: Yes (Hospitalization)
  Sender: FDA-Public Use
  Company Number: None

PATIENT
  Age: 59 Year
  Sex: Male
  Weight: 80.2 kg

DRUGS (8)
  1. DITROPAN [Concomitant]
  2. ESOMEPRAZOLE [Concomitant]
  3. ATIVAN [Concomitant]
  4. VIT D [Concomitant]
  5. ERTAPENEM [Suspect]
     Indication: ANTIBIOTIC THERAPY
     Dosage: 1 GRAM DAILY X 7 IV
     Route: 042
  6. WELLBUTRIN XL [Suspect]
     Dosage: 300MG DAILY PO CHRONIC
     Route: 048
  7. CYMBALTA [Concomitant]
  8. TASIGNA [Concomitant]

REACTIONS (3)
  - CONFUSIONAL STATE [None]
  - HALLUCINATION [None]
  - CONVULSION [None]
